FAERS Safety Report 8561770-4 (Version None)
Quarter: 2012Q3

REPORT INFORMATION
  Report Type: 
  Country: None (occurrence: None)
  Receive Date: 20120802
  Receipt Date: 20120720
  Transmission Date: 20120928
  Serious: Yes (Hospitalization, Disabling, Other)
  Sender: FDA-Public Use
  Company Number: US-009507513-1202USA02462

PATIENT

DRUGS (11)
  1. FOSAMAX [Suspect]
     Dosage: 70 MG
     Route: 048
     Dates: start: 20090601
  2. MIACALCIN [Concomitant]
     Indication: OSTEOPOROSIS
     Dosage: UNK
     Dates: start: 20030219, end: 20030421
  3. TRIAMTERENE AND HYDROCHLOROTHIAZIDE [Concomitant]
     Indication: OEDEMA
     Dosage: UNK
     Dates: start: 20050603, end: 20070705
  4. FOSAMAX [Suspect]
     Dosage: 70 MG
     Route: 048
     Dates: start: 20080306, end: 20100405
  5. LISINOPRIL [Concomitant]
     Indication: HYPERTENSION
     Dosage: UNK
     Dates: start: 20060821
  6. FOSAMAX [Suspect]
     Indication: OSTEOPOROSIS
     Dosage: 10 MG, QD
     Route: 048
     Dates: start: 20010918, end: 20030717
  7. FOSAMAX [Suspect]
     Indication: OSTEOPENIA
     Dosage: 70 MG
     Route: 048
     Dates: start: 20050621, end: 20080130
  8. TRIAMTERENE AND HYDROCHLOROTHIAZIDE [Concomitant]
     Indication: BLOOD PRESSURE
  9. CORTICOSTEROIDS (UNSPECIFIED) [Concomitant]
     Indication: LICHEN SCLEROSUS
  10. COZAAR [Concomitant]
     Indication: HYPERTENSION
     Dosage: UNK
     Dates: start: 20060911, end: 20081117
  11. ASPIRIN [Concomitant]
     Indication: ARTHRITIS
     Dosage: UNK
     Dates: start: 20070716

REACTIONS (59)
  - FEMUR FRACTURE [None]
  - OSTEOARTHRITIS [None]
  - CELLULITIS [None]
  - PNEUMONIA [None]
  - FRACTURED SACRUM [None]
  - HAEMOGLOBIN DECREASED [None]
  - INFLAMMATION [None]
  - ANGIOEDEMA [None]
  - FEMORAL NECK FRACTURE [None]
  - HAEMATOMA [None]
  - CYSTITIS [None]
  - APPENDIX DISORDER [None]
  - LACUNAR INFARCTION [None]
  - BLOOD CALCIUM DECREASED [None]
  - ARTHROPATHY [None]
  - ATRIAL FIBRILLATION [None]
  - CONTUSION [None]
  - HYPERTONIC BLADDER [None]
  - BLOOD SODIUM DECREASED [None]
  - GROIN PAIN [None]
  - DEPRESSION [None]
  - HYPOTHYROIDISM [None]
  - IRON DEFICIENCY [None]
  - BLADDER PROLAPSE [None]
  - ARRHYTHMIA [None]
  - URINARY TRACT INFECTION [None]
  - DRUG ADMINISTRATION ERROR [None]
  - COUGH [None]
  - HYPOPARATHYROIDISM [None]
  - FACE OEDEMA [None]
  - GALLBLADDER DISORDER [None]
  - CHEST PAIN [None]
  - ARTHRITIS [None]
  - POLLAKIURIA [None]
  - AUTOIMMUNE THYROIDITIS [None]
  - HAEMATOCRIT DECREASED [None]
  - BLOOD URINE PRESENT [None]
  - CARDIAC MURMUR [None]
  - PAIN [None]
  - CARDIAC FAILURE ACUTE [None]
  - CEREBROVASCULAR ACCIDENT [None]
  - URINARY INCONTINENCE [None]
  - WHITE BLOOD CELLS URINE [None]
  - SKIN DISORDER [None]
  - KNEE ARTHROPLASTY [None]
  - LOW TURNOVER OSTEOPATHY [None]
  - THYROID ADENOMA [None]
  - HERPES ZOSTER [None]
  - TRANSIENT ISCHAEMIC ATTACK [None]
  - PULMONARY ARTERIAL PRESSURE INCREASED [None]
  - ANXIETY DISORDER [None]
  - OEDEMA [None]
  - BACK PAIN [None]
  - HYPERTENSION [None]
  - ANAEMIA POSTOPERATIVE [None]
  - CATARACT [None]
  - PANIC DISORDER [None]
  - ABDOMINAL PAIN LOWER [None]
  - PAIN IN EXTREMITY [None]
